FAERS Safety Report 4672498-5 (Version None)
Quarter: 2005Q2

REPORT INFORMATION
  Report Type: 
  Country: None (occurrence: None)
  Receive Date: 20050524
  Receipt Date: 20050503
  Transmission Date: 20051028
  Serious: Yes (Hospitalization, Other)
  Sender: FDA-Public Use
  Company Number: 200514004GDDC

PATIENT
  Age: 20 Year
  Sex: Female

DRUGS (3)
  1. CLEXANE [Suspect]
     Indication: PRE-ECLAMPSIA
     Route: 058
     Dates: start: 20050423
  2. LABETALOL [Concomitant]
     Indication: HYPERTENSION
     Dates: start: 20050418, end: 20050425
  3. METHYLDOPA [Concomitant]
     Indication: HYPERTENSION
     Dates: start: 20050418, end: 20050425

REACTIONS (2)
  - DRUG EXPOSURE DURING PREGNANCY [None]
  - HYPERKALAEMIA [None]
